FAERS Safety Report 9674459 (Version 1)
Quarter: 2013Q4

REPORT INFORMATION
  Report Type: Spontaneous
  Country: US (occurrence: US)
  Receive Date: 20131107
  Receipt Date: 20131107
  Transmission Date: 20140711
  Serious: No
  Sender: FDA-Public Use
  Company Number: US-009507513-1310USA012898

PATIENT
  Age: 58 Year
  Sex: Female
  Weight: 77.98 kg

DRUGS (4)
  1. NASONEX [Suspect]
     Indication: HYPERSENSITIVITY
     Dosage: 2 SPRAY PER NOSTRIL DAILY
     Route: 045
     Dates: start: 2000
  2. ALLEGRA [Concomitant]
     Indication: HYPERSENSITIVITY
     Dosage: 180 MG DAILY, PRN
     Route: 048
     Dates: start: 2005
  3. PATANASE [Concomitant]
     Indication: HYPERSENSITIVITY
     Dosage: UNK
     Dates: start: 2007
  4. ASPIRIN [Concomitant]
     Indication: THROMBOPHLEBITIS
     Dosage: DAILY DOSE 81 MG, QD
     Route: 048
     Dates: start: 2013

REACTIONS (1)
  - Nasal polyps [Not Recovered/Not Resolved]
